FAERS Safety Report 24789896 (Version 1)
Quarter: 2024Q4

REPORT INFORMATION
  Report Type: Spontaneous
  Country: CN (occurrence: CN)
  Receive Date: 20241230
  Receipt Date: 20241230
  Transmission Date: 20250114
  Serious: Yes (Hospitalization)
  Sender: NOVARTIS
  Company Number: CN-002147023-NVSC2024CN144356

PATIENT
  Age: 40 Year
  Sex: Female

DRUGS (11)
  1. XOLAIR [Suspect]
     Active Substance: OMALIZUMAB
     Indication: Urticaria
     Dosage: 300 MG, QD (150MG ? 2 BOTTLES)
     Route: 058
  2. CYCLOSPORINE [Suspect]
     Active Substance: CYCLOSPORINE
     Indication: Urticaria
     Dosage: UNK
     Route: 048
  3. ZYRTEC [Concomitant]
     Active Substance: CETIRIZINE HYDROCHLORIDE
     Indication: Hypersensitivity
     Dosage: UNK
     Route: 065
  4. ALBUMIN BAXTER [Concomitant]
     Indication: Urticaria
     Dosage: 10 MG, QD (IVGTT) ((50ML:10G/ BOTTLE) 1 BOTTLE)
     Route: 065
     Dates: start: 20220111
  5. ALBUMIN BAXTER [Concomitant]
     Indication: Hypoproteinaemia
  6. MALT [Concomitant]
     Active Substance: BARLEY MALT
     Indication: Product used for unknown indication
     Dosage: 15 MG
     Route: 065
  7. CRATAEGUS LAEVIGATA FRUIT [Concomitant]
     Active Substance: CRATAEGUS LAEVIGATA FRUIT
     Indication: Product used for unknown indication
     Dosage: 10 MG (NET)
     Route: 065
  8. EBASTINE [Concomitant]
     Active Substance: EBASTINE
     Indication: Urticaria
     Dosage: 20 MG, QD (PER TIME (2 TABLETS)) (10MG*14 TABLETS) 2 BOXES
     Route: 048
     Dates: start: 20220111
  9. EBASTINE [Concomitant]
     Active Substance: EBASTINE
     Indication: Hypoproteinaemia
  10. FEXOFENADINE HYDROCHLORIDE [Concomitant]
     Active Substance: FEXOFENADINE HYDROCHLORIDE
     Indication: Urticaria
     Dosage: 60 MG, BID (1 TABLET EACH TIME)
     Route: 048
     Dates: start: 20220102
  11. HISTAMINE DIHYDROCHLORIDE\HUMAN IMMUNOGLOBULIN G [Concomitant]
     Active Substance: HISTAMINE DIHYDROCHLORIDE\HUMAN IMMUNOGLOBULIN G
     Indication: Product used for unknown indication
     Dosage: UNK
     Route: 065

REACTIONS (10)
  - Drug ineffective [Unknown]
  - Eosinophil count abnormal [Recovering/Resolving]
  - Nasopharyngitis [Unknown]
  - Decreased immune responsiveness [Unknown]
  - Erythema [Unknown]
  - Urticaria [Unknown]
  - Pruritus [Unknown]
  - Sleep disorder [Recovering/Resolving]
  - Oedema [Recovering/Resolving]
  - Off label use [Unknown]
